FAERS Safety Report 9251486 (Version 3)
Quarter: 2013Q2

REPORT INFORMATION
  Report Type: Report from Study
  Country: BE (occurrence: BE)
  Receive Date: 20130424
  Receipt Date: 20130528
  Transmission Date: 20140414
  Serious: Yes (Hospitalization)
  Sender: FDA-Public Use
  Company Number: BE-VERTEX PHARMACEUTICALS INC.-2013-003598

PATIENT
  Age: 55 Year
  Sex: Male

DRUGS (20)
  1. VX-950 (TELAPREVIR) [Suspect]
     Indication: HEPATITIS C
     Dosage: 750 MG, TID
     Route: 048
     Dates: start: 20130114
  2. Z-RIBAVIRIN [Suspect]
     Indication: HEPATITIS C
     Dosage: 200 MG IN MORNING
     Route: 048
     Dates: start: 20130114
  3. Z-RIBAVIRIN [Suspect]
     Dosage: 400 MG, QD
     Route: 048
     Dates: start: 20130114
  4. Z-PEGYLATED INTERFERON-2A [Suspect]
     Indication: HEPATITIS C
     Dosage: 180 ?G, QW
     Route: 058
  5. TACROLIMUS [Suspect]
     Indication: PRODUCT USED FOR UNKNOWN INDICATION
     Dosage: 0.5 MG, QW
     Route: 048
     Dates: start: 20130114
  6. TACROLIMUS [Suspect]
     Dosage: 1.5 MG, QD
     Route: 048
     Dates: start: 20110902, end: 20130113
  7. MYCOPHENOLATE MOFETIL [Concomitant]
     Indication: IMMUNOSUPPRESSION
     Dosage: 2 G, BID
     Route: 048
  8. ACETYLSALICYLIC ACID [Concomitant]
     Indication: ANTICOAGULANT THERAPY
     Dosage: 80 MG, QD
     Route: 048
  9. SIMVASTATIN [Concomitant]
     Indication: HYPERCHOLESTEROLAEMIA
     Dosage: 20 MG, QD
     Route: 048
     Dates: end: 20130113
  10. COZAAR [Concomitant]
     Indication: HYPERTENSION
     Dosage: 50 MG, QD
     Route: 048
  11. TAMSULOSIN [Concomitant]
     Indication: BENIGN PROSTATIC HYPERPLASIA
     Dosage: 0.4 MG, QD
     Route: 048
  12. ESCITALOPRAM [Concomitant]
     Indication: DEPRESSED MOOD
     Dosage: 10 MG, QD
     Route: 048
     Dates: end: 20130118
  13. PROTHIPENDYL [Concomitant]
     Indication: INSOMNIA
     Dosage: 80 MG, QD
     Route: 048
  14. RISPERIDONE [Concomitant]
     Indication: INSOMNIA
     Dosage: 1 MG, QD
     Route: 048
  15. ALPRAZOLAM [Concomitant]
     Indication: INSOMNIA
     Dosage: 0.5 MG, QD
     Route: 048
  16. TRAMADOL [Concomitant]
     Dosage: 100 MG, BID
     Route: 048
  17. CALCIUM [Concomitant]
     Indication: OSTEOPOROSIS PROPHYLAXIS
     Dosage: 1200 MG, BID
     Route: 048
  18. INSULIN [Concomitant]
     Indication: DIABETES MELLITUS
     Dosage: 30 IU, QID
     Route: 058
  19. VENLAFAXINE [Concomitant]
     Indication: DEPRESSED MOOD
     Dosage: 75 MG, BID
     Route: 048
     Dates: start: 20130119
  20. OLANZAPINE [Concomitant]
     Indication: ANXIETY
     Dosage: 5 MG, QD
     Route: 048
     Dates: start: 20130219

REACTIONS (1)
  - Asthenia [Recovered/Resolved]
